FAERS Safety Report 23967097 (Version 2)
Quarter: 2025Q4

REPORT INFORMATION
  Report Type: Spontaneous
  Country: EU (occurrence: EU)
  Receive Date: 20240612
  Receipt Date: 20251107
  Transmission Date: 20260118
  Serious: Yes (Death, Other)
  Sender: BIOCON
  Company Number: EU-MIMS-BCONMC-2853

PATIENT

DRUGS (2)
  1. SEMGLEE (INSULIN GLARGINE-YFGN) [Suspect]
     Active Substance: INSULIN GLARGINE-YFGN
     Indication: Product used for unknown indication
     Dosage: UNK
     Route: 065
  2. SEMGLEE (INSULIN GLARGINE-YFGN) [Suspect]
     Active Substance: INSULIN GLARGINE-YFGN

REACTIONS (2)
  - Death [Fatal]
  - Device mechanical issue [Unknown]
